FAERS Safety Report 9364117 (Version 2)
Quarter: 2013Q2

REPORT INFORMATION
  Report Type: Report from Study
  Country: US (occurrence: US)
  Receive Date: 20130624
  Receipt Date: 20130625
  Transmission Date: 20140414
  Serious: Yes (Other)
  Sender: FDA-Public Use
  Company Number: US-ABBOTT-13P-163-1105890-00

PATIENT
  Age: 27 Year
  Sex: Female
  Weight: 61.74 kg

DRUGS (4)
  1. HUMIRA [Suspect]
     Indication: CROHN^S DISEASE
     Dates: start: 20121003
  2. HUMIRA [Suspect]
     Dates: start: 20130517
  3. FIORICET [Concomitant]
     Indication: TENSION HEADACHE
     Dosage: 50/325 MG AS NEEDED
  4. MULTIPLE VITAMIN [Concomitant]
     Indication: PRODUCT USED FOR UNKNOWN INDICATION
     Dosage: ONCE IN A WHILE

REACTIONS (14)
  - Platelet count decreased [Not Recovered/Not Resolved]
  - Proctalgia [Unknown]
  - Injection site pain [Recovered/Resolved]
  - Injection site haemorrhage [Unknown]
  - Injection site bruising [Unknown]
  - Haemorrhage [Unknown]
  - Fatigue [Unknown]
  - Headache [Unknown]
  - Lymphadenopathy [Unknown]
  - Lymphadenopathy [Unknown]
  - Infectious mononucleosis [Recovered/Resolved]
  - Viral infection [Recovered/Resolved]
  - Painful defaecation [Recovered/Resolved]
  - Device malfunction [Unknown]
